FAERS Safety Report 7572465-8 (Version None)
Quarter: 2011Q2

REPORT INFORMATION
  Report Type: 
  Country: None (occurrence: None)
  Receive Date: 20110624
  Receipt Date: 20110614
  Transmission Date: 20111010
  Serious: Yes (Hospitalization)
  Sender: FDA-Public Use
  Company Number: GB-GENENTECH-319502

PATIENT
  Sex: Female

DRUGS (10)
  1. FLUDARABINE PHOSPHATE [Suspect]
     Indication: B-CELL LYMPHOMA
     Dosage: 60 MG, UNK
     Route: 048
     Dates: start: 20110217, end: 20110506
  2. CYCLOPHOSPHAMIDE [Suspect]
     Indication: B-CELL LYMPHOMA
     Dosage: 400 MG, UNK
     Route: 048
     Dates: start: 20110217, end: 20110506
  3. RITUXIMAB [Suspect]
     Indication: B-CELL LYMPHOMA
     Dosage: 600 MG, Q21D
     Route: 042
     Dates: start: 20110217, end: 20110504
  4. METOCLOPRAMIDE [Concomitant]
     Indication: B-CELL LYMPHOMA
     Dosage: 10 MG, UNK
     Route: 048
     Dates: start: 20110217
  5. FLUCONAZOLE [Concomitant]
     Indication: B-CELL LYMPHOMA
     Dosage: 50 MG, QAM
     Route: 048
     Dates: start: 20110217
  6. PIPERACILLIN AND TAZOBACTAM [Concomitant]
     Indication: B-CELL LYMPHOMA
     Dosage: 45 G, UNK
     Route: 042
     Dates: start: 20110521
  7. FILGRASTIM [Concomitant]
     Indication: B-CELL LYMPHOMA
     Dosage: 300 MG, QAM
     Route: 058
     Dates: start: 20110523
  8. ALLOPURINOL [Concomitant]
     Indication: B-CELL LYMPHOMA
     Dosage: 300 MG, QAM
     Route: 048
     Dates: start: 20110217
  9. ACYCLOVIR [Concomitant]
     Indication: B-CELL LYMPHOMA
     Dosage: 400 MG, BID
     Route: 048
     Dates: start: 20110217
  10. ACETAMINOPHEN [Concomitant]
     Indication: B-CELL LYMPHOMA
     Dosage: 1 G, UNK
     Route: 048
     Dates: start: 20110521

REACTIONS (2)
  - HAEMATURIA [None]
  - NEUTROPENIA [None]
